FAERS Safety Report 4653431-9 (Version None)
Quarter: 2005Q2

REPORT INFORMATION
  Report Type: 
  Country: None (occurrence: None)
  Receive Date: 20050503
  Receipt Date: 20050418
  Transmission Date: 20051028
  Serious: Yes (Other)
  Sender: FDA-Public Use
  Company Number: BR-2005-006161

PATIENT
  Sex: Female

DRUGS (3)
  1. MIRENA [Suspect]
     Indication: CONTRACEPTION
     Dosage: 20 MICROG/DAY, CONT, INTRA-UTERINE
     Route: 015
     Dates: start: 20041202
  2. METICORTEN [Concomitant]
  3. DEXCHLORPHENIRAMINE MALEATE [Concomitant]

REACTIONS (6)
  - ALANINE AMINOTRANSFERASE INCREASED [None]
  - ASPARTATE AMINOTRANSFERASE INCREASED [None]
  - GASTROENTERITIS [None]
  - MALAISE [None]
  - NAUSEA [None]
  - PROTHROMBIN TIME SHORTENED [None]
